FAERS Safety Report 16222931 (Version 1)
Quarter: 2019Q2

REPORT INFORMATION
  Report Type: Spontaneous
  Country: US (occurrence: US)
  Receive Date: 20190422
  Receipt Date: 20190422
  Transmission Date: 20190711
  Serious: No
  Sender: FDA-Public Use
  Company Number: US-009507513-1904USA005260

PATIENT
  Age: 34 Year
  Sex: Female
  Weight: 146 kg

DRUGS (1)
  1. NEXPLANON [Suspect]
     Active Substance: ETONOGESTREL
     Dosage: 1 DOSAGE FORM
     Route: 059
     Dates: start: 20150407

REACTIONS (4)
  - Complication associated with device [Not Recovered/Not Resolved]
  - No adverse event [Unknown]
  - Device deployment issue [Not Recovered/Not Resolved]
  - Incorrect product administration duration [Unknown]

NARRATIVE: CASE EVENT DATE: 20180408
